FAERS Safety Report 5039877-8 (Version None)
Quarter: 2006Q2

REPORT INFORMATION
  Report Type: 
  Country: None (occurrence: None)
  Receive Date: 20060601
  Receipt Date: 20060109
  Transmission Date: 20061013
  Serious: No
  Sender: FDA-Public Use
  Company Number: 2006PV006849

PATIENT
  Age: 42 Year
  Sex: Female

DRUGS (1)
  1. BYETTA [Suspect]
     Indication: BLOOD INSULIN INCREASED
     Dosage: 5 MCG;BID;SC
     Route: 058
     Dates: start: 20060109

REACTIONS (1)
  - INJECTION SITE HAEMORRHAGE [None]
